FAERS Safety Report 10567981 (Version 1)
Quarter: 2014Q4

REPORT INFORMATION
  Report Type: Spontaneous
  Country: US (occurrence: None)
  Receive Date: 20141104
  Receipt Date: 20141104
  Transmission Date: 20150529
  Serious: Yes (Other)
  Sender: FDA-Public Use
  Company Number: 20140654

PATIENT
  Age: 80 Year
  Sex: Female

DRUGS (1)
  1. VENOFER [Suspect]
     Active Substance: IRON SUCROSE
     Indication: ANAEMIA
     Route: 042
     Dates: start: 20140624, end: 20140723

REACTIONS (15)
  - Asthenia [None]
  - Arthralgia [None]
  - Oropharyngeal pain [None]
  - Generalised oedema [None]
  - Abasia [None]
  - Burning sensation [None]
  - Gait disturbance [None]
  - Dizziness [None]
  - Ageusia [None]
  - Sinus headache [None]
  - Injection site pain [None]
  - Headache [None]
  - Ear pain [None]
  - Muscle spasms [None]
  - Abdominal pain upper [None]

NARRATIVE: CASE EVENT DATE: 20140716
